FAERS Safety Report 4381859-3 (Version None)
Quarter: 2004Q2

REPORT INFORMATION
  Report Type: 
  Country: None (occurrence: None)
  Receive Date: 20040615
  Receipt Date: 20040602
  Transmission Date: 20050107
  Serious: Yes (Hospitalization)
  Sender: FDA-Public Use
  Company Number: 2004036670

PATIENT
  Age: 67 Year
  Sex: Female

DRUGS (5)
  1. LIPITOR [Suspect]
     Indication: HYPERLIPIDAEMIA
     Dosage: 10 MG (1 IN 1 D), ORAL
     Route: 048
     Dates: start: 20030601, end: 20040407
  2. ETHYL ICOSAPENTATE (ETHYL ICOSAPENTATE) [Concomitant]
  3. BENIDIPINE HYDROCHLORIDE (BENIDIPINE HYDROCHLORIDE) [Concomitant]
  4. EPERISONE HYDROCHLORIDE (EPERISONE HYDROCHLORIDE) [Concomitant]
  5. ORGAN LYSATE, STANDARDIZED (ORGAN LYSATE, STANDARDIZED) [Concomitant]

REACTIONS (6)
  - BLOOD PRESSURE INCREASED [None]
  - CONVULSION [None]
  - DYSGEUSIA [None]
  - HEADACHE [None]
  - RESPIRATORY DISORDER [None]
  - VOMITING [None]
